FAERS Safety Report 9295240 (Version 9)
Quarter: 2014Q2

REPORT INFORMATION
  Report Type: Spontaneous
  Country: FR (occurrence: FR)
  Receive Date: 20130517
  Receipt Date: 20140606
  Transmission Date: 20141212
  Serious: Yes (Hospitalization)
  Sender: FDA-Public Use
  Company Number: FR-PFIZER INC-2013151423

PATIENT
  Age: 55 Year
  Sex: Female

DRUGS (3)
  1. DOSTINEX [Suspect]
     Indication: PITUITARY TUMOUR BENIGN
     Dosage: 0.5 MG, WEEKLY
     Dates: start: 20011116, end: 200711
  2. MEDIATOR [Suspect]
     Indication: DYSLIPIDAEMIA
     Dosage: 150 MG, DAILY
     Dates: start: 1992
  3. MEDIATOR [Suspect]
     Indication: DIABETES MELLITUS
     Dosage: 150 MG, 3 TABLETS DAILY
     Dates: end: 2007

REACTIONS (11)
  - Mitral valve incompetence [Recovered/Resolved with Sequelae]
  - Aortic valve incompetence [Recovered/Resolved with Sequelae]
  - Tricuspid valve incompetence [Recovered/Resolved with Sequelae]
  - Pulmonary hypertension [Recovered/Resolved with Sequelae]
  - Acute pulmonary oedema [Recovered/Resolved with Sequelae]
  - Splenic embolism [Unknown]
  - Splenic infarction [Unknown]
  - Renal disorder [Unknown]
  - Device related infection [Unknown]
  - Angina pectoris [Unknown]
  - Diabetes mellitus [Unknown]
